FAERS Safety Report 21355380 (Version 1)
Quarter: 2022Q3

REPORT INFORMATION
  Report Type: Spontaneous
  Country: JP (occurrence: JP)
  Receive Date: 20220920
  Receipt Date: 20220920
  Transmission Date: 20221026
  Serious: Yes (Death)
  Sender: FDA-Public Use
  Company Number: JP-MYLANLABS-2022M1093499

PATIENT
  Age: 80 Year
  Sex: Male

DRUGS (2)
  1. EPIPEN [Suspect]
     Active Substance: EPINEPHRINE
     Indication: Anaphylactic shock
     Route: 030
  2. EPIPEN [Suspect]
     Active Substance: EPINEPHRINE
     Indication: Arthropod sting

REACTIONS (1)
  - Drug ineffective [Fatal]
